FAERS Safety Report 7243562-1 (Version None)
Quarter: 2011Q1

REPORT INFORMATION
  Report Type: 
  Country: None (occurrence: None)
  Receive Date: 20110125
  Receipt Date: 20110112
  Transmission Date: 20110831
  Serious: Yes (Other)
  Sender: FDA-Public Use
  Company Number: PHHY2010CA90235

PATIENT
  Sex: Female

DRUGS (1)
  1. GENTEAL [Suspect]
     Indication: EYE SWELLING
     Dosage: UNK
     Route: 061

REACTIONS (2)
  - VITREOUS DETACHMENT [None]
  - RETINAL DEGENERATION [None]
